FAERS Safety Report 21628784 (Version 1)
Quarter: 2022Q4

REPORT INFORMATION
  Report Type: Report from Study
  Country: US (occurrence: US)
  Receive Date: 20221122
  Receipt Date: 20221122
  Transmission Date: 20230113
  Serious: No
  Sender: FDA-Public Use
  Company Number: US-ABBVIE-22K-163-4502920-00

PATIENT
  Sex: Female
  Weight: 69.39 kg

DRUGS (11)
  1. RINVOQ [Suspect]
     Active Substance: UPADACITINIB
     Indication: Dermatitis atopic
     Dosage: DRUG STARTED IN AUG 2022L THE EVENT ONSET DATE FOR BOTH THE ADVERSE EVENT WAS IN 2022
     Route: 048
  2. HYDROCHLOROTHIAZIDE [Concomitant]
     Active Substance: HYDROCHLOROTHIAZIDE
     Indication: Product used for unknown indication
  3. Doxycyline monohydrate [Concomitant]
     Indication: Product used for unknown indication
  4. AMLODIPINE [Concomitant]
     Active Substance: AMLODIPINE BESYLATE
     Indication: Product used for unknown indication
  5. ASPIRIN [Concomitant]
     Active Substance: ASPIRIN
     Indication: COVID-19 immunisation
  6. Covid19 vaccine [Concomitant]
     Indication: COVID-19 immunisation
     Dosage: MODERNA BOOSTER,
     Route: 030
     Dates: start: 202209, end: 202209
  7. Covid19 vaccine [Concomitant]
     Indication: COVID-19 immunisation
     Dosage: MODERNA BOOSTER
     Route: 030
  8. Covid19 vaccine [Concomitant]
     Indication: COVID-19 immunisation
     Dosage: MODERNA 2 SHOTS
     Route: 030
  9. LISINOPRIL [Concomitant]
     Active Substance: LISINOPRIL
     Indication: Product used for unknown indication
  10. RESTASIS [Concomitant]
     Active Substance: CYCLOSPORINE
     Indication: Product used for unknown indication
  11. METRONIDAZOLE [Concomitant]
     Active Substance: METRONIDAZOLE
     Indication: Rosacea

REACTIONS (1)
  - Eczema [Recovering/Resolving]
